FAERS Safety Report 11387815 (Version 1)
Quarter: 2015Q3

REPORT INFORMATION
  Report Type: Report from Study
  Country: US (occurrence: US)
  Receive Date: 20150817
  Receipt Date: 20150817
  Transmission Date: 20151125
  Serious: No
  Sender: FDA-Public Use
  Company Number: PHEH2015US004239

PATIENT
  Age: 26 Year
  Sex: Female

DRUGS (2)
  1. SIGNIFOR [Suspect]
     Active Substance: PASIREOTIDE
     Indication: PITUITARY-DEPENDENT CUSHING^S SYNDROME
     Dosage: 0.3 MG, BID
     Route: 058
     Dates: start: 20150225
  2. SIGNIFOR [Suspect]
     Active Substance: PASIREOTIDE
     Dosage: 0.6 MG,0.6 MG/ML, BID
     Route: 058
     Dates: start: 20150704

REACTIONS (8)
  - Pruritus [Unknown]
  - Underdose [Recovered/Resolved]
  - Faeces discoloured [Unknown]
  - Erythema [Unknown]
  - Injection site reaction [Unknown]
  - Swelling [Unknown]
  - Tenderness [Unknown]
  - Blood glucose increased [Recovering/Resolving]

NARRATIVE: CASE EVENT DATE: 20150301
